FAERS Safety Report 8308321 (Version 2)
Quarter: 2012Q4

REPORT INFORMATION
  Report Type: 
  Country: US (occurrence: US)
  Receive Date: 20111222
  Receipt Date: 20121214
  Transmission Date: 20130627
  Serious: No
  Sender: FDA-Public Use
  Company Number: US-GLAXOSMITHKLINE-A0893246A

PATIENT
  Age: 55 Year
  Sex: Male

DRUGS (3)
  1. AVODART [Suspect]
     Indication: BENIGN PROSTATIC HYPERPLASIA
     Dosage: 1CAP Per day
     Route: 048
     Dates: start: 201004
  2. FLOMAX [Suspect]
  3. ANTIHYPERTENSIVE [Concomitant]

REACTIONS (2)
  - Pollakiuria [Unknown]
  - Ill-defined disorder [Unknown]
